FAERS Safety Report 10686433 (Version 4)
Quarter: 2015Q1

REPORT INFORMATION
  Report Type: Report from Study
  Country: DE (occurrence: DE)
  Receive Date: 20141231
  Receipt Date: 20150304
  Transmission Date: 20150720
  Serious: Yes (Life-Threatening, Hospitalization)
  Sender: FDA-Public Use
  Company Number: DE-ACTELION-A-NJ2014-110404

PATIENT
  Age: 82 Year
  Sex: Female
  Weight: 150 kg

DRUGS (18)
  1. ALLOPURINOL. [Concomitant]
     Active Substance: ALLOPURINOL
     Dosage: UNK
     Dates: start: 20110105
  2. DIGITOXIN [Concomitant]
     Active Substance: DIGITOXIN
     Dosage: UNK
     Dates: start: 200701
  3. VENTAVIS [Suspect]
     Active Substance: ILOPROST
     Indication: PULMONARY ARTERIAL HYPERTENSION
     Dosage: 5 MG, 6-9 X DAILY
     Route: 055
     Dates: start: 20060306, end: 20141024
  4. REVATIO [Concomitant]
     Active Substance: SILDENAFIL CITRATE
     Dosage: 20 MG, TID
     Dates: start: 20070912, end: 20141031
  5. REVATIO [Concomitant]
     Active Substance: SILDENAFIL CITRATE
     Dosage: 20 MG, UNK
     Dates: start: 20141103
  6. ALDACTONE [Concomitant]
     Active Substance: SPIRONOLACTONE
     Dosage: UNK
     Dates: start: 20071103
  7. VENTAVIS [Suspect]
     Active Substance: ILOPROST
     Dosage: 5 MCG X 1 DAY
     Route: 055
     Dates: start: 20141114, end: 20141114
  8. L-THYROXINE [Concomitant]
     Active Substance: LEVOTHYROXINE
     Dosage: UNK
     Dates: start: 199501
  9. AMBRISENTAN [Concomitant]
     Active Substance: AMBRISENTAN
     Dosage: 10 MG, QD
     Dates: start: 20110105
  10. TORSEMIDE. [Concomitant]
     Active Substance: TORSEMIDE
     Dosage: UNK
     Dates: start: 200501
  11. IBUPROFEN. [Concomitant]
     Active Substance: IBUPROFEN
     Dosage: 400 MG, PRN
     Dates: start: 200501
  12. ARIMIDEX [Concomitant]
     Active Substance: ANASTROZOLE
     Indication: BREAST CANCER
     Dosage: UNK
     Dates: start: 20090119
  13. PANTOPRAZOLE [Concomitant]
     Active Substance: PANTOPRAZOLE SODIUM
     Dosage: UNK
     Dates: start: 20131029, end: 20141030
  14. PANTOPRAZOLE [Concomitant]
     Active Substance: PANTOPRAZOLE SODIUM
     Dosage: UNK
     Dates: start: 20141201
  15. HYDROCHLOROTHIAZIDE. [Concomitant]
     Active Substance: HYDROCHLOROTHIAZIDE
     Dosage: UNK
     Dates: start: 20110701
  16. XARELTO [Suspect]
     Active Substance: RIVAROXABAN
     Indication: PULMONARY ARTERIAL HYPERTENSION
     Dosage: 15 MG, QD
     Route: 048
     Dates: start: 20130110, end: 20141201
  17. UNACID PD [Concomitant]
     Active Substance: SULTAMICILLIN TOSYLATE
     Dosage: UNK
     Dates: start: 20141023
  18. VENTAVIS [Suspect]
     Active Substance: ILOPROST
     Dosage: 5 MCG, Q4HRS
     Route: 055
     Dates: start: 20141024, end: 20141102

REACTIONS (2)
  - Pneumonia [Recovered/Resolved]
  - Gastrointestinal haemorrhage [Recovered/Resolved]

NARRATIVE: CASE EVENT DATE: 20141102
